FAERS Safety Report 17965038 (Version 1)
Quarter: 2020Q2

REPORT INFORMATION
  Report Type: Report from Study
  Country: IN (occurrence: IN)
  Receive Date: 20200630
  Receipt Date: 20200630
  Transmission Date: 20200714
  Serious: Yes (Death, Hospitalization)
  Sender: FDA-Public Use
  Company Number: NVSC2020IN044307

PATIENT
  Age: 73 Year
  Sex: Male

DRUGS (2)
  1. SPEXIB [Suspect]
     Active Substance: CERITINIB
     Indication: BREAST CANCER METASTATIC
     Dosage: 450 MG, QD
     Route: 065
     Dates: start: 20190110
  2. SPEXIB [Suspect]
     Active Substance: CERITINIB
     Indication: NON-SMALL CELL LUNG CANCER
     Dosage: 450 MG, QD
     Route: 048
     Dates: start: 20191001

REACTIONS (2)
  - Death [Fatal]
  - Cough [Unknown]

NARRATIVE: CASE EVENT DATE: 20200204
